FAERS Safety Report 8937124 (Version 1)
Quarter: 2012Q4

REPORT INFORMATION
  Report Type: Spontaneous
  Country: US (occurrence: None)
  Receive Date: 20121128
  Receipt Date: 20121128
  Transmission Date: 20130627
  Serious: Yes (Life-Threatening)
  Sender: FDA-Public Use
  Company Number: None

PATIENT
  Age: 63 Year
  Sex: Female
  Weight: 74.84 kg

DRUGS (1)
  1. ZANTAC 75 [Suspect]
     Indication: STOMACH UPSET
     Route: 048
     Dates: start: 20121121, end: 20121121

REACTIONS (7)
  - Paraesthesia oral [None]
  - Paraesthesia oral [None]
  - Feeling abnormal [None]
  - Lymphadenopathy [None]
  - Paraesthesia [None]
  - Tooth disorder [None]
  - Throat tightness [None]
